FAERS Safety Report 4375705-1 (Version None)
Quarter: 2004Q2

REPORT INFORMATION
  Report Type: 
  Country: None (occurrence: None)
  Receive Date: 20040608
  Receipt Date: 20030408
  Transmission Date: 20050107
  Serious: Yes (Other)
  Sender: FDA-Public Use
  Company Number: 200310067BCC

PATIENT
  Age: 46 Year
  Sex: Female
  Weight: 81.6475 kg

DRUGS (5)
  1. ALEVE [Suspect]
     Indication: HEADACHE
     Dosage: 440 MG, QD, ORAL
     Route: 048
     Dates: start: 20021226
  2. ATACAND HCT [Concomitant]
  3. ATENOLOL [Concomitant]
  4. PRILOSEC [Concomitant]
  5. MULTI-VITAMINS [Concomitant]

REACTIONS (6)
  - BURNING SENSATION [None]
  - DYSPNOEA [None]
  - EYE SWELLING [None]
  - HYPERSENSITIVITY [None]
  - LOCALISED OEDEMA [None]
  - SWELLING FACE [None]
